FAERS Safety Report 16266949 (Version 2)
Quarter: 2020Q1

REPORT INFORMATION
  Report Type: Spontaneous
  Country: US (occurrence: US)
  Receive Date: 20190502
  Receipt Date: 20200304
  Transmission Date: 20200409
  Serious: Yes (Other)
  Sender: FDA-Public Use
  Company Number: US-VIFOR (INTERNATIONAL) INC.-VIT-2019-04082

PATIENT
  Age: 78 Year
  Sex: Male

DRUGS (19)
  1. COENZYME Q10 [Concomitant]
     Active Substance: UBIDECARENONE
  2. ELIQUIS [Concomitant]
     Active Substance: APIXABAN
  3. MAGNESIUM CITRATE. [Concomitant]
     Active Substance: MAGNESIUM CITRATE
  4. TUMS [Concomitant]
     Active Substance: CALCIUM CARBONATE
  5. TYLENOL [Concomitant]
     Active Substance: ACETAMINOPHEN
  6. FISH OIL [Concomitant]
     Active Substance: FISH OIL
  7. VELTASSA [Suspect]
     Active Substance: PATIROMER
     Indication: HYPERKALAEMIA
     Route: 048
     Dates: start: 20180403
  8. CALCIUM 600+D3 [Concomitant]
     Active Substance: CALCIUM CARBONATE\VITAMIN D
  9. VITAMIN D3 [Concomitant]
     Active Substance: CHOLECALCIFEROL
  10. ASPIRIN. [Concomitant]
     Active Substance: ASPIRIN
  11. RAMIPRIL. [Concomitant]
     Active Substance: RAMIPRIL
  12. RANEXA [Concomitant]
     Active Substance: RANOLAZINE
  13. ALPRAZOLAM. [Concomitant]
     Active Substance: ALPRAZOLAM
  14. BYSTOLIC [Concomitant]
     Active Substance: NEBIVOLOL HYDROCHLORIDE
  15. FAMOTIDINE. [Concomitant]
     Active Substance: FAMOTIDINE
  16. ZOLPIDEM TARTRATE. [Concomitant]
     Active Substance: ZOLPIDEM TARTRATE
  17. ATORVASTATIN CALCIUM. [Concomitant]
     Active Substance: ATORVASTATIN CALCIUM
  18. ESTER-C/BIOFLAVONOIDS [Concomitant]
  19. SUPER B-50 COMPLEX [Concomitant]

REACTIONS (4)
  - Unevaluable event [Unknown]
  - Product dose omission [Unknown]
  - Pleural effusion [Unknown]
  - Myocardial infarction [Unknown]

NARRATIVE: CASE EVENT DATE: 20200202
